FAERS Safety Report 20373376 (Version 3)
Quarter: 2024Q1

REPORT INFORMATION
  Report Type: Spontaneous
  Country: US (occurrence: US)
  Receive Date: 20220125
  Receipt Date: 20240201
  Transmission Date: 20240410
  Serious: No
  Sender: FDA-Public Use
  Company Number: US-HISAMITSU PHARMACEUTICAL CO., INC.-2021-NOV-US004038

PATIENT
  Sex: Female

DRUGS (1)
  1. SECUADO [Suspect]
     Active Substance: ASENAPINE
     Indication: Schizophrenia
     Dosage: 3.8, 2-3 WEEKS, GOING ON A MONTH
     Route: 062
     Dates: start: 2021, end: 2021

REACTIONS (7)
  - Depersonalisation/derealisation disorder [Not Recovered/Not Resolved]
  - Hallucination [Not Recovered/Not Resolved]
  - Abnormal behaviour [Not Recovered/Not Resolved]
  - Enuresis [Not Recovered/Not Resolved]
  - Decreased appetite [Not Recovered/Not Resolved]
  - Weight decreased [Not Recovered/Not Resolved]
  - Therapeutic product ineffective [Unknown]

NARRATIVE: CASE EVENT DATE: 20210101
